FAERS Safety Report 24911351 (Version 3)
Quarter: 2025Q1

REPORT INFORMATION
  Report Type: Spontaneous
  Country: CN (occurrence: CN)
  Receive Date: 20250131
  Receipt Date: 20250207
  Transmission Date: 20250408
  Serious: Yes (Life-Threatening, Hospitalization, Other)
  Sender: PFIZER
  Company Number: CN-MLMSERVICE-20250122-PI370029-00077-2

PATIENT
  Age: 39 Year
  Sex: Male

DRUGS (3)
  1. IRINOTECAN HYDROCHLORIDE [Suspect]
     Active Substance: IRINOTECAN HYDROCHLORIDE
     Indication: Rectal adenocarcinoma
     Dosage: 120 MG, 1X/DAY; GIVEN THE 10TH CYCLE OF CHEMOTHERAPY
     Dates: start: 20230109
  2. OXALIPLATIN [Suspect]
     Active Substance: OXALIPLATIN
     Indication: Rectal adenocarcinoma
     Dosage: 175 MG, 1X/DAY; GIVEN THE 10TH CYCLE OF CHEMOTHERAPY
     Dates: start: 20230109
  3. CAPECITABINE [Suspect]
     Active Substance: CAPECITABINE
     Indication: Rectal adenocarcinoma
     Route: 048
     Dates: start: 20230109

REACTIONS (1)
  - Myelosuppression [Unknown]

NARRATIVE: CASE EVENT DATE: 20230116
